APPROVED DRUG PRODUCT: CETROTIDE
Active Ingredient: CETRORELIX ACETATE
Strength: EQ 3MG BASE/VIAL
Dosage Form/Route: POWDER;SUBCUTANEOUS
Application: N021197 | Product #002
Applicant: EMD SERONO INC
Approved: Aug 11, 2000 | RLD: Yes | RS: No | Type: DISCN